FAERS Safety Report 19655091 (Version 1)
Quarter: 2021Q3

REPORT INFORMATION
  Report Type: Spontaneous
  Country: US (occurrence: US)
  Receive Date: 20210802
  Receipt Date: 20210802
  Transmission Date: 20211014
  Serious: Yes (Other)
  Sender: FDA-Public Use
  Company Number: None

PATIENT
  Age: 57 Year
  Sex: Female

DRUGS (1)
  1. MAYZENT [Suspect]
     Active Substance: SIPONIMOD
     Route: 048
     Dates: start: 2019

REACTIONS (5)
  - Drug ineffective [None]
  - Fatigue [None]
  - Viral infection [None]
  - Balance disorder [None]
  - Rash [None]

NARRATIVE: CASE EVENT DATE: 20210802
